FAERS Safety Report 8092902-2 (Version None)
Quarter: 2012Q1

REPORT INFORMATION
  Report Type: 
  Country: None (occurrence: None)
  Receive Date: 20120128
  Receipt Date: 20110804
  Transmission Date: 20120608
  Serious: No
  Sender: FDA-Public Use
  Company Number: US-ABBOTT-11P-163-0844210-00

PATIENT
  Sex: Female

DRUGS (11)
  1. VITAMIN D [Concomitant]
     Indication: PRODUCT USED FOR UNKNOWN INDICATION
     Route: 048
  2. LORAZEPAM [Concomitant]
     Indication: ANXIETY
     Dosage: ONCE EVERY 8 HOURS PRN
     Route: 048
  3. UNKNOWN SLEEPING PILL [Concomitant]
     Indication: INSOMNIA
     Dosage: NOT REPORTED
  4. FOLIC ACID [Concomitant]
     Indication: PRODUCT USED FOR UNKNOWN INDICATION
     Route: 048
  5. METROGEL [Concomitant]
     Indication: PRODUCT USED FOR UNKNOWN INDICATION
     Dosage: PRN
     Route: 061
  6. AZATHIOPRINE [Concomitant]
     Indication: ARTHRALGIA
     Route: 048
  7. MELOXICAM [Concomitant]
     Indication: ARTHRITIS
     Route: 048
  8. STEROID [Concomitant]
     Indication: PRODUCT USED FOR UNKNOWN INDICATION
     Dosage: EYE DROPS PRN
  9. HUMIRA [Suspect]
     Indication: PSORIATIC ARTHROPATHY
     Dates: end: 20110620
  10. EFFEXOR [Concomitant]
     Indication: PRODUCT USED FOR UNKNOWN INDICATION
     Route: 048
  11. CITALOPRAM [Concomitant]
     Indication: PRODUCT USED FOR UNKNOWN INDICATION
     Route: 048

REACTIONS (4)
  - DRUG EFFECT DECREASED [None]
  - OEDEMA PERIPHERAL [None]
  - INAPPROPRIATE SCHEDULE OF DRUG ADMINISTRATION [None]
  - PAIN [None]
